FAERS Safety Report 17664181 (Version 1)
Quarter: 2020Q2

REPORT INFORMATION
  Report Type: Spontaneous
  Country: US (occurrence: US)
  Receive Date: 20200414
  Receipt Date: 20200414
  Transmission Date: 20200713
  Serious: No
  Sender: FDA-Public Use
  Company Number: US-GLAXOSMITHKLINE-US2020062903

PATIENT
  Sex: Female

DRUGS (1)
  1. BREO ELLIPTA [Suspect]
     Active Substance: FLUTICASONE FUROATE\VILANTEROL TRIFENATATE
     Indication: CHRONIC OBSTRUCTIVE PULMONARY DISEASE
     Dosage: UNK
     Route: 065
     Dates: start: 201909

REACTIONS (7)
  - Arthralgia [Unknown]
  - Cough [Unknown]
  - Blood glucose increased [Unknown]
  - Upper respiratory tract infection [Unknown]
  - Pain in extremity [Unknown]
  - Back pain [Unknown]
  - Glucose tolerance impaired [Unknown]
